APPROVED DRUG PRODUCT: ATAZANAVIR SULFATE
Active Ingredient: ATAZANAVIR SULFATE
Strength: EQ 150MG BASE
Dosage Form/Route: CAPSULE;ORAL
Application: A212579 | Product #001 | TE Code: AB
Applicant: LAURUS LABS LTD
Approved: Apr 30, 2021 | RLD: No | RS: No | Type: RX